FAERS Safety Report 25388599 (Version 2)
Quarter: 2025Q2

REPORT INFORMATION
  Report Type: Report from Study
  Country: US (occurrence: US)
  Receive Date: 20250603
  Receipt Date: 20250613
  Transmission Date: 20250716
  Serious: Yes (Other)
  Sender: ABBVIE
  Company Number: US-ABBVIE-6296648

PATIENT
  Age: 68 Year
  Sex: Female

DRUGS (1)
  1. HUMIRA [Suspect]
     Active Substance: ADALIMUMAB
     Indication: Crohn^s disease
     Route: 058
     Dates: start: 20210101, end: 2022

REACTIONS (6)
  - Fistula [Recovered/Resolved]
  - Flatulence [Not Recovered/Not Resolved]
  - Urinary tract infection [Unknown]
  - Abdominal distension [Not Recovered/Not Resolved]
  - Crohn^s disease [Unknown]
  - Psoriasis [Unknown]

NARRATIVE: CASE EVENT DATE: 20250101
